FAERS Safety Report 5248870-1 (Version None)
Quarter: 2007Q1

REPORT INFORMATION
  Report Type: 
  Country: None (occurrence: None)
  Receive Date: 20070228
  Receipt Date: 20060328
  Transmission Date: 20070707
  Serious: No
  Sender: FDA-Public Use
  Company Number: US-GLAXOSMITHKLINE-A0599354A

PATIENT
  Age: 41 Year
  Sex: Female

DRUGS (2)
  1. VALTREX [Suspect]
     Dosage: 500MG PER DAY
     Route: 048
     Dates: start: 20051101
  2. NO CONCURRENT MEDICATION [Concomitant]

REACTIONS (4)
  - ABNORMAL DREAMS [None]
  - DIZZINESS [None]
  - FEELING ABNORMAL [None]
  - SOMNOLENCE [None]
